FAERS Safety Report 21004870 (Version 1)
Quarter: 2022Q2

REPORT INFORMATION
  Report Type: Spontaneous
  Country: US (occurrence: None)
  Receive Date: 20220624
  Receipt Date: 20220624
  Transmission Date: 20220721
  Serious: Yes (Hospitalization)
  Sender: FDA-Public Use
  Company Number: None

PATIENT
  Age: 59 Year
  Sex: Male
  Weight: 131 kg

DRUGS (1)
  1. DALBAVANCIN [Suspect]
     Active Substance: DALBAVANCIN
     Indication: Localised infection
     Dosage: FREQUENCY : ONCE;?
     Route: 041
     Dates: start: 20220623, end: 20220623

REACTIONS (10)
  - Infusion related reaction [None]
  - Depressed level of consciousness [None]
  - Loss of consciousness [None]
  - Foaming at mouth [None]
  - Pulse abnormal [None]
  - Sinus tachycardia [None]
  - Hypoxia [None]
  - Fatigue [None]
  - Dyspnoea [None]
  - Dizziness [None]

NARRATIVE: CASE EVENT DATE: 20220623
